FAERS Safety Report 20897253 (Version 1)
Quarter: 2022Q2

REPORT INFORMATION
  Report Type: Spontaneous
  Country: FR (occurrence: FR)
  Receive Date: 20220531
  Receipt Date: 20220531
  Transmission Date: 20220721
  Serious: Yes (Other)
  Sender: FDA-Public Use
  Company Number: None

PATIENT
  Age: 69 Year
  Sex: Male

DRUGS (9)
  1. DILTIAZEM HYDROCHLORIDE [Suspect]
     Active Substance: DILTIAZEM HYDROCHLORIDE
     Indication: Hypertension
     Route: 048
     Dates: start: 20180605
  2. TAXOTERE [Suspect]
     Active Substance: DOCETAXEL
     Indication: Lung neoplasm malignant
     Route: 042
  3. ACETAMINOPHEN [Suspect]
     Active Substance: ACETAMINOPHEN
     Indication: Pain
     Route: 048
  4. HYDROCHLOROTHIAZIDE\IRBESARTAN [Suspect]
     Active Substance: HYDROCHLOROTHIAZIDE\IRBESARTAN
     Indication: Peripheral arterial occlusive disease
     Route: 048
  5. CODEINE [Suspect]
     Active Substance: CODEINE
     Indication: Pain
     Route: 048
  6. PREDNISOLONE SODIUM METAZOATE [Suspect]
     Active Substance: PREDNISOLONE SODIUM METAZOATE
     Indication: Product used for unknown indication
     Route: 048
     Dates: start: 20180515
  7. EZETIMIBE\SIMVASTATIN [Suspect]
     Active Substance: EZETIMIBE\SIMVASTATIN
     Indication: Peripheral arterial occlusive disease
     Route: 048
     Dates: start: 20180515
  8. INSULIN ASPART [Concomitant]
     Active Substance: INSULIN ASPART
     Indication: Type 1 diabetes mellitus
  9. NOVORAPID [Concomitant]
     Active Substance: INSULIN ASPART
     Indication: Type 1 diabetes mellitus

REACTIONS (4)
  - Arthralgia [Recovering/Resolving]
  - Drug interaction [Unknown]
  - Myalgia [Recovering/Resolving]
  - Blood creatine phosphokinase increased [Recovering/Resolving]

NARRATIVE: CASE EVENT DATE: 20180515
